FAERS Safety Report 8008118-1 (Version None)
Quarter: 2011Q4

REPORT INFORMATION
  Report Type: 
  Country: None (occurrence: None)
  Receive Date: 20111227
  Receipt Date: 20111223
  Transmission Date: 20120403
  Serious: Yes (Hospitalization)
  Sender: FDA-Public Use
  Company Number: PHHO2011BE018668

PATIENT
  Sex: Male
  Weight: 74.9 kg

DRUGS (7)
  1. SOM230 [Suspect]
     Dosage: NO TREATMENT RECEIVED
     Dates: start: 20111027, end: 20111115
  2. AFINITOR [Suspect]
     Indication: PANCREATIC NEUROENDOCRINE TUMOUR
     Dosage: 10 MG, QD
     Route: 048
     Dates: start: 20110928, end: 20111106
  3. SOM230 [Suspect]
     Indication: PANCREATIC NEUROENDOCRINE TUMOUR
     Dosage: 60 MG, UNK
     Route: 030
     Dates: start: 20110929, end: 20111026
  4. INNOHEP [Concomitant]
     Indication: PULMONARY EMBOLISM
     Dosage: UNK
     Dates: start: 20110926
  5. SOM230 [Suspect]
     Dosage: UNK
     Route: 030
     Dates: start: 20111116
  6. AFINITOR [Suspect]
     Dosage: UNK
     Route: 048
     Dates: start: 20111116
  7. AFINITOR [Suspect]
     Dosage: NO TREATMENT RECEIVED
     Dates: start: 20111108, end: 20111115

REACTIONS (1)
  - JAUNDICE [None]
